FAERS Safety Report 18212330 (Version 1)
Quarter: 2020Q3

REPORT INFORMATION
  Report Type: Spontaneous
  Country: US (occurrence: US)
  Receive Date: 20200828
  Receipt Date: 20200828
  Transmission Date: 20201103
  Serious: Yes (Death)
  Sender: FDA-Public Use
  Company Number: None

PATIENT
  Age: 89 Year
  Sex: Female
  Weight: 88.5 kg

DRUGS (7)
  1. DEXAMETHASONE 6 MG IV ONCE DAILY [Concomitant]
     Dates: start: 20200805, end: 20200814
  2. CONVALESCENT PLASMA [Concomitant]
     Active Substance: HUMAN PLASMA
     Dates: start: 20200806, end: 20200806
  3. REMDESIVIR. [Suspect]
     Active Substance: REMDESIVIR
     Indication: COVID-19 PNEUMONIA
     Route: 042
     Dates: start: 20200806, end: 20200810
  4. AMIODARONE 200 MG FEED?TUBE BID [Concomitant]
     Dates: start: 20200814, end: 20200823
  5. EZETIMIBE 10 MG PO ONCE DAILY [Concomitant]
     Dates: start: 20200806, end: 20200823
  6. PANTOPRAZOLE 40 MG IV BID [Concomitant]
     Dates: start: 20200812, end: 20200823
  7. ZINC SULFATE 220 MG PO ONCE DAILY [Concomitant]
     Dates: start: 20200806, end: 20200819

REACTIONS (8)
  - Haematoma [None]
  - Acute right ventricular failure [None]
  - Anaemia [None]
  - Heparin-induced thrombocytopenia [None]
  - Acute kidney injury [None]
  - Gastrointestinal haemorrhage [None]
  - Acute myocardial infarction [None]
  - Pulmonary embolism [None]

NARRATIVE: CASE EVENT DATE: 20200823
